FAERS Safety Report 10337085 (Version 3)
Quarter: 2015Q2

REPORT INFORMATION
  Report Type: Spontaneous
  Country: US (occurrence: US)
  Receive Date: 20140723
  Receipt Date: 20150413
  Transmission Date: 20150821
  Serious: Yes (Disabling, Other)
  Sender: FDA-Public Use
  Company Number: US-INCYTE CORPORATION-2014IN001551

PATIENT
  Age: 76 Year
  Sex: Male
  Weight: 92.97 kg

DRUGS (16)
  1. DUPHALAC [Concomitant]
     Active Substance: LACTULOSE
     Dosage: 15 ML, QD
  2. LOPURIN [Concomitant]
     Active Substance: ALLOPURINOL
     Dosage: 100 MG, QD
  3. NITROGLYCERIN. [Concomitant]
     Active Substance: NITROGLYCERIN
     Indication: CHEST PAIN
     Dosage: 0.4 MG, AS DIRECTED (EVERY FIVE MINUTES) AS NEEDED
     Route: 060
  4. JAKAFI [Suspect]
     Active Substance: RUXOLITINIB
     Dosage: 20 MG, WEEKLY
     Route: 048
     Dates: start: 20140609
  5. SPIRONOLACTONE. [Concomitant]
     Active Substance: SPIRONOLACTONE
     Dosage: 50 MG, QD
     Route: 048
  6. PLAVIX [Concomitant]
     Active Substance: CLOPIDOGREL BISULFATE
     Dosage: 75 MG, QD
  7. OMEPRAZOLE. [Concomitant]
     Active Substance: OMEPRAZOLE
     Dosage: 40 MG, QD
     Route: 048
  8. JAKAFI [Suspect]
     Active Substance: RUXOLITINIB
     Dosage: 20 MG 2 DAYS/WEEK
     Route: 048
     Dates: start: 20140625
  9. JAKAFI [Suspect]
     Active Substance: RUXOLITINIB
     Dosage: UNK, EVERY 4 DAYS
     Route: 048
     Dates: start: 20140707
  10. COREG [Concomitant]
     Active Substance: CARVEDILOL
     Dosage: 6.25 MG, BID
  11. JAKAFI [Suspect]
     Active Substance: RUXOLITINIB
     Indication: ESSENTIAL THROMBOCYTHAEMIA
     Dosage: 20 MG, QOD AT HS
     Route: 048
     Dates: start: 201405, end: 20140602
  12. JAKAFI [Suspect]
     Active Substance: RUXOLITINIB
     Indication: MYELOFIBROSIS
     Dosage: 20 MG, BID
     Route: 048
     Dates: start: 20140421, end: 20140507
  13. TRAMADOL [Concomitant]
     Active Substance: TRAMADOL
     Dosage: 50 MG, EVERY FOUR HOURS, PRN
     Route: 048
  14. DESYREL [Concomitant]
     Active Substance: TRAZODONE HYDROCHLORIDE
     Dosage: 50 UNK, UNK
  15. ZOCOR [Concomitant]
     Active Substance: SIMVASTATIN
     Dosage: 20 MG, QD
  16. LAMISIL [Concomitant]
     Active Substance: TERBINAFINE HYDROCHLORIDE
     Dosage: 1% CREAM, TOPICAL, AS DIRECTED, PRN
     Route: 061

REACTIONS (11)
  - Anaemia [Unknown]
  - Gait disturbance [Unknown]
  - Dizziness [Unknown]
  - White blood cell count decreased [Unknown]
  - Somnolence [Recovered/Resolved]
  - Fatigue [Recovered/Resolved]
  - Malaise [Unknown]
  - Off label use [Unknown]
  - Confusional state [Recovered/Resolved]
  - Thrombocytopenia [Recovered/Resolved]
  - Headache [Unknown]

NARRATIVE: CASE EVENT DATE: 2014
